FAERS Safety Report 10058284 (Version 1)
Quarter: 2014Q2

REPORT INFORMATION
  Report Type: Spontaneous
  Country: US (occurrence: None)
  Receive Date: 20140403
  Receipt Date: 20140403
  Transmission Date: 20141212
  Serious: Yes (Other)
  Sender: FDA-Public Use
  Company Number: None

PATIENT
  Age: 55 Year
  Sex: Female
  Weight: 65.77 kg

DRUGS (9)
  1. HYDROCODONE/ACETAMINOPHEN [Suspect]
     Indication: INTERVERTEBRAL DISC DEGENERATION
     Dosage: 5/325 105 FOUR TIMES DAILY BY MOUTH
     Route: 048
     Dates: start: 20140130, end: 20140131
  2. HYDROCODONE/ACETAMINOPHEN [Suspect]
     Indication: BACK PAIN
     Dosage: 5/325 105 FOUR TIMES DAILY BY MOUTH
     Route: 048
     Dates: start: 20140130, end: 20140131
  3. HYDROCODONE [Concomitant]
  4. LYRICA [Concomitant]
  5. METOPROLOL [Concomitant]
  6. TAMSULOSIN/FLOMAX [Concomitant]
  7. IBUPROFEN [Concomitant]
  8. UNISOM [Concomitant]
  9. ASPERCREME [Concomitant]

REACTIONS (10)
  - Back pain [None]
  - Sciatica [None]
  - Headache [None]
  - Heart rate increased [None]
  - Blood pressure increased [None]
  - Insomnia [None]
  - Crying [None]
  - Suicidal ideation [None]
  - Feeling hot [None]
  - Drug ineffective [None]
